FAERS Safety Report 8390079-7 (Version None)
Quarter: 2012Q2

REPORT INFORMATION
  Report Type: 
  Country: None (occurrence: None)
  Receive Date: 20120529
  Receipt Date: 20120522
  Transmission Date: 20120825
  Serious: Yes (Hospitalization, Other)
  Sender: FDA-Public Use
  Company Number: PHEH2012US010838

PATIENT
  Sex: Female
  Weight: 81.633 kg

DRUGS (11)
  1. CODEINE SULFATE [Concomitant]
     Dosage: UNK UKN, UNK
  2. LYRICA [Suspect]
     Indication: INTRACRANIAL ANEURYSM
     Dosage: 300 MG, BID
     Dates: start: 20120507
  3. TEGRETOL [Suspect]
     Indication: NERVE INJURY
     Dosage: UNK UKN, UNK
     Dates: start: 20111001
  4. VICODIN ES [Concomitant]
     Indication: PAIN
     Dosage: 750 MG, BID
     Dates: start: 20110101
  5. LYRICA [Suspect]
     Indication: NERVE INJURY
     Dosage: 300 MG, BID
     Dates: start: 20110501, end: 20111101
  6. MORPHINE [Concomitant]
     Dosage: UNK UKN, UNK
  7. NEURONTIN [Suspect]
     Indication: NERVE INJURY
     Dosage: UNK UKN, UNK
     Dates: start: 20111001
  8. NEURONTIN [Suspect]
     Indication: INTRACRANIAL ANEURYSM
  9. PAXIL [Concomitant]
     Indication: DEPRESSION
     Dosage: 20 MG, BID
  10. TEGRETOL [Suspect]
     Indication: INTRACRANIAL ANEURYSM
  11. XANAX [Concomitant]
     Indication: ANXIETY
     Dosage: 0.5 MG, PRN

REACTIONS (9)
  - NERVE INJURY [None]
  - SPEECH DISORDER [None]
  - FALL [None]
  - DRUG INEFFECTIVE [None]
  - HYPOAESTHESIA [None]
  - FEELING ABNORMAL [None]
  - CEREBROVASCULAR ACCIDENT [None]
  - APHASIA [None]
  - ANEURYSM RUPTURED [None]
